FAERS Safety Report 8776491 (Version 1)
Quarter: 2012Q4

REPORT INFORMATION
  Report Type: Report from Study
  Country: CA (occurrence: CA)
  Receive Date: 20120910
  Receipt Date: 20120910
  Transmission Date: 20130627
  Serious: Yes (Other)
  Sender: FDA-Public Use
  Company Number: CA-JNJFOC-20120901116

PATIENT
  Sex: Male
  Weight: 104.6 kg

DRUGS (2)
  1. REMICADE [Suspect]
     Indication: COLITIS ULCERATIVE
     Route: 042
     Dates: start: 20101116
  2. REMICADE [Suspect]
     Indication: COLITIS ULCERATIVE
     Dosage: 12th infusion
     Route: 042
     Dates: start: 20120705

REACTIONS (3)
  - Amnesia [Not Recovered/Not Resolved]
  - Musculoskeletal pain [Not Recovered/Not Resolved]
  - Headache [Not Recovered/Not Resolved]
